FAERS Safety Report 5832147-7 (Version None)
Quarter: 2008Q3

REPORT INFORMATION
  Report Type: 
  Country: None (occurrence: None)
  Receive Date: 20080731
  Receipt Date: 20080731
  Transmission Date: 20090109
  Serious: Yes (Hospitalization)
  Sender: FDA-Public Use
  Company Number: None

PATIENT
  Age: 52 Year
  Sex: Female
  Weight: 102 kg

DRUGS (13)
  1. BEVACIZUMAB 15 MG/KG GENENTECH [Suspect]
     Indication: BREAST CANCER METASTATIC
     Dosage: 1707 MG Q 3 WEEKS IV
     Route: 042
     Dates: start: 20080123, end: 20080723
  2. GEMCITABINE [Suspect]
     Indication: BREAST CANCER METASTATIC
     Dosage: 2200 MG WEEKLY IV
     Route: 042
     Dates: start: 20080123, end: 20080723
  3. MIRALAX [Concomitant]
  4. STOOL SOFTENER [Concomitant]
  5. MOTRIN [Concomitant]
  6. ZOFRAN [Concomitant]
  7. OXYCODONE HCL [Concomitant]
  8. SYNTHROID [Concomitant]
  9. POTASSIUM CHLORIDE [Concomitant]
  10. ATIVAN [Concomitant]
  11. TRILEPTAL [Concomitant]
  12. FENTANYL TRANSDERMAL SYSTEM [Concomitant]
  13. CALCIUM W/ VIT D [Concomitant]

REACTIONS (3)
  - ABDOMINAL PAIN LOWER [None]
  - HYPOPHAGIA [None]
  - LETHARGY [None]
